FAERS Safety Report 5175143-8 (Version None)
Quarter: 2006Q4

REPORT INFORMATION
  Report Type: 
  Country: None (occurrence: None)
  Receive Date: 20061206
  Receipt Date: 20061120
  Transmission Date: 20070319
  Serious: Yes (Other)
  Sender: FDA-Public Use
  Company Number: 2006EU003036

PATIENT
  Age: 57 Year
  Sex: Male

DRUGS (3)
  1. PROTOPIC [Suspect]
     Indication: BALANITIS
     Dosage: 0.03%, UNKNOWN/D, TOPICAL
     Route: 061
  2. LEVOTHYROXINE SODIUM [Concomitant]
  3. LOSARTAN POTASSIUM AND HYDROCHLOROTHIAZIDE [Concomitant]

REACTIONS (1)
  - PENIS CARCINOMA [None]
